FAERS Safety Report 8764871 (Version 2)
Quarter: 2013Q4

REPORT INFORMATION
  Report Type: Spontaneous
  Country: US (occurrence: US)
  Receive Date: 20120901
  Receipt Date: 20131101
  Transmission Date: 20140711
  Serious: No
  Sender: FDA-Public Use
  Company Number: US-009507513-1208USA001702

PATIENT
  Sex: Male

DRUGS (5)
  1. SIMVASTATIN TABLETS, USP [Suspect]
     Indication: BLOOD CHOLESTEROL
     Dosage: 40 MG, QD
     Route: 048
  2. LEVOXYL [Concomitant]
  3. AMLODIPINE [Concomitant]
  4. DEPO-TESTOSTERONE [Concomitant]
  5. DDAVP [Concomitant]

REACTIONS (1)
  - Insomnia [Not Recovered/Not Resolved]
